FAERS Safety Report 16969413 (Version 1)
Quarter: 2019Q4

REPORT INFORMATION
  Report Type: Spontaneous
  Country: US (occurrence: US)
  Receive Date: 20191029
  Receipt Date: 20191029
  Transmission Date: 20200122
  Serious: Yes (Disabling)
  Sender: FDA-Public Use
  Company Number: US-SA-2019SA298974

PATIENT
  Age: 56 Year
  Sex: Male

DRUGS (1)
  1. PRALUENT [Suspect]
     Active Substance: ALIROCUMAB
     Indication: PRODUCT USED FOR UNKNOWN INDICATION
     Dosage: 150 MG
     Route: 058
     Dates: start: 201901, end: 201909

REACTIONS (2)
  - Pain in extremity [Unknown]
  - Gait inability [Unknown]

NARRATIVE: CASE EVENT DATE: 2019
